FAERS Safety Report 7912152-7 (Version None)
Quarter: 2011Q4

REPORT INFORMATION
  Report Type: 
  Country: None (occurrence: None)
  Receive Date: 20111114
  Receipt Date: 20111110
  Transmission Date: 20120403
  Serious: Yes (Hospitalization, Other)
  Sender: FDA-Public Use
  Company Number: BR-PFIZER INC-2011275729

PATIENT
  Age: 43 Year
  Sex: Female
  Weight: 68 kg

DRUGS (4)
  1. DOSTINEX [Suspect]
     Indication: PITUITARY TUMOUR
     Dosage: 0.5 MG, ALTERNATE DAY
     Route: 048
     Dates: start: 20111108
  2. TOPIRAMATE [Concomitant]
     Indication: CONVULSION
     Dosage: 100 MG (TWO TABLETS OF 50MG), 1X/DAY
  3. ALENDRONATE SODIUM [Concomitant]
     Indication: BONE DISORDER
     Dosage: 70 MG, WEEKLY
  4. CALCIUM [Concomitant]
     Indication: BONE DISORDER
     Dosage: UNK

REACTIONS (1)
  - CONVULSION [None]
